FAERS Safety Report 12356355 (Version 1)
Quarter: 2016Q2

REPORT INFORMATION
  Report Type: Spontaneous
  Country: US (occurrence: US)
  Receive Date: 20160511
  Receipt Date: 20160511
  Transmission Date: 20160815
  Serious: No
  Sender: FDA-Public Use
  Company Number: US-QOL MEDICAL, LLC-1051949

PATIENT
  Age: 16 Year
  Sex: Male
  Weight: 36.36 kg

DRUGS (6)
  1. NASONEX [Concomitant]
     Active Substance: MOMETASONE FUROATE
  2. ZOPENEX [Concomitant]
  3. FLOVENT [Concomitant]
     Active Substance: FLUTICASONE PROPIONATE
  4. SUCRAID [Suspect]
     Active Substance: SACROSIDASE
     Indication: SUCRASE-ISOMALTASE DEFICIENCY
     Route: 048
     Dates: start: 20150105
  5. PEPTO BISMAL [Concomitant]
  6. PROBIOTIC [Concomitant]
     Active Substance: PROBIOTICS NOS

REACTIONS (5)
  - Nausea [Not Recovered/Not Resolved]
  - Lip oedema [Recovered/Resolved]
  - Weight decreased [Not Recovered/Not Resolved]
  - Diarrhoea [Recovering/Resolving]
  - Oral discomfort [Recovered/Resolved]

NARRATIVE: CASE EVENT DATE: 20151230
